FAERS Safety Report 12323780 (Version 3)
Quarter: 2016Q2

REPORT INFORMATION
  Report Type: Spontaneous
  Country: IE (occurrence: IE)
  Receive Date: 20160502
  Receipt Date: 20160616
  Transmission Date: 20160815
  Serious: Yes (Death, Other)
  Sender: FDA-Public Use
  Company Number: IE-HQ SPECIALTY-IE-2016INT000254

PATIENT
  Age: 33 Year
  Sex: Female
  Weight: 63 kg

DRUGS (9)
  1. CLEXANE [Concomitant]
     Active Substance: ENOXAPARIN SODIUM
     Indication: PRODUCT USED FOR UNKNOWN INDICATION
     Dosage: 40 MG, UNK
     Dates: start: 20140902, end: 20140912
  2. NOREPINEPHRINE [Concomitant]
     Active Substance: NOREPINEPHRINE\NOREPINEPHRINE BITARTRATE
     Indication: HYPOTENSION
     Dosage: 6 MG IN 50 ML
     Dates: start: 20140905, end: 20140912
  3. LINEZOLID. [Concomitant]
     Active Substance: LINEZOLID
     Indication: PRODUCT USED FOR UNKNOWN INDICATION
     Dosage: 1200 MG (600 MG, 2 IN 1 D)
     Dates: start: 20140905, end: 20140913
  4. NEXIUM [Concomitant]
     Active Substance: ESOMEPRAZOLE MAGNESIUM
     Indication: PRODUCT USED FOR UNKNOWN INDICATION
     Dosage: 80 MG (40 MG, 2 IN 1 D)
     Dates: start: 20140901, end: 20140912
  5. CASPOFUNGIN [Concomitant]
     Active Substance: CASPOFUNGIN
     Indication: PRODUCT USED FOR UNKNOWN INDICATION
     Dosage: 50 MG, UNK
     Dates: start: 20140904, end: 20140911
  6. DEXMEDETOMIDINE HYDROCHLORIDE. [Suspect]
     Active Substance: DEXMEDETOMIDINE HYDROCHLORIDE
     Indication: SEDATION
     Dosage: 100 MCG/ML AT 20-24 ML/HR
     Route: 042
     Dates: start: 20140911, end: 20140913
  7. PARACETAMOL [Concomitant]
     Active Substance: ACETAMINOPHEN
     Indication: PRODUCT USED FOR UNKNOWN INDICATION
     Dosage: 4 G, (1 G, 4 IN 1 D)
     Dates: start: 20140905, end: 20140913
  8. DIPEPTIVEN [Concomitant]
     Active Substance: GLUTAMINE
     Indication: PRODUCT USED FOR UNKNOWN INDICATION
     Dosage: 200 MG, UNK
     Dates: start: 20140909, end: 20140912
  9. MEROPENEM. [Concomitant]
     Active Substance: MEROPENEM
     Indication: PERITONITIS
     Dosage: 6 G (2 G, 3 IN 1 D)
     Route: 042
     Dates: start: 20140908, end: 20140913

REACTIONS (4)
  - Sepsis [Fatal]
  - Pyrexia [Fatal]
  - Cardiac arrest [Fatal]
  - Hypotension [Fatal]

NARRATIVE: CASE EVENT DATE: 201409
